FAERS Safety Report 25101589 (Version 2)
Quarter: 2025Q2

REPORT INFORMATION
  Report Type: Spontaneous
  Country: ES (occurrence: ES)
  Receive Date: 20250320
  Receipt Date: 20250401
  Transmission Date: 20250716
  Serious: Yes (Hospitalization, Other)
  Sender: ALEXION PHARMACEUTICALS
  Company Number: ES-ASTRAZENECA-202503GLO016636ES

PATIENT
  Age: 74 Year

DRUGS (21)
  1. OMEPRAZOLE [Suspect]
     Active Substance: OMEPRAZOLE
     Indication: Peptic ulcer
     Route: 065
  2. OMEPRAZOLE [Suspect]
     Active Substance: OMEPRAZOLE
     Route: 065
  3. PREDNISONE [Suspect]
     Active Substance: PREDNISONE
     Indication: Oligoarthritis
  4. PREDNISONE [Suspect]
     Active Substance: PREDNISONE
  5. PREDNISONE [Suspect]
     Active Substance: PREDNISONE
  6. PREDNISONE [Suspect]
     Active Substance: PREDNISONE
  7. COLCHICINE [Suspect]
     Active Substance: COLCHICINE
     Indication: Oligoarthritis
     Dosage: 0.5 MILLIGRAM, Q12H
     Route: 065
  8. AMLODIPINE BESYLATE\OLMESARTAN MEDOXOMIL [Suspect]
     Active Substance: AMLODIPINE BESYLATE\OLMESARTAN MEDOXOMIL
     Indication: Hypertension
     Dosage: 1 DOSAGE FORM, QD
     Route: 065
  9. MEPIVACAINE [Suspect]
     Active Substance: MEPIVACAINE HYDROCHLORIDE
     Indication: Arthritis
     Route: 065
  10. TRIAMCINOLONE [Suspect]
     Active Substance: TRIAMCINOLONE
     Indication: Arthritis
     Route: 065
  11. ALLOPURINOL [Concomitant]
     Active Substance: ALLOPURINOL
  12. CYANOCOBALAMIN\FOLIC ACID [Concomitant]
     Active Substance: CYANOCOBALAMIN\FOLIC ACID
     Route: 065
  13. DAPAGLIFLOZIN [Concomitant]
     Active Substance: DAPAGLIFLOZIN
     Route: 065
  14. ACETAMINOPHEN [Concomitant]
     Active Substance: ACETAMINOPHEN
     Route: 065
  15. LUMIGAN [Concomitant]
     Active Substance: BIMATOPROST
     Route: 065
  16. Magnogene [Concomitant]
     Route: 065
  17. ROCALTROL [Concomitant]
     Active Substance: CALCITRIOL
     Route: 065
  18. FAMOTIDINE [Concomitant]
     Active Substance: FAMOTIDINE
     Route: 065
  19. Macular [Concomitant]
     Route: 065
  20. KETOROLAC [Concomitant]
     Active Substance: KETOROLAC TROMETHAMINE
     Route: 065
  21. CALCIUM CARBONATE [Concomitant]
     Active Substance: CALCIUM CARBONATE
     Route: 065

REACTIONS (4)
  - Upper gastrointestinal haemorrhage [Recovered/Resolved]
  - Duodenal ulcer [Unknown]
  - Hypocalcaemia [Unknown]
  - Hypomagnesaemia [Recovered/Resolved]
